FAERS Safety Report 12828405 (Version 2)
Quarter: 2016Q4

REPORT INFORMATION
  Report Type: Spontaneous
  Country: US (occurrence: US)
  Receive Date: 20161007
  Receipt Date: 20161208
  Transmission Date: 20170207
  Serious: Yes (Other)
  Sender: FDA-Public Use
  Company Number: US-TEVA-698791USA

PATIENT
  Sex: Female

DRUGS (21)
  1. SENNA PLUS [Concomitant]
     Active Substance: DOCUSATE SODIUM\SENNOSIDES\SENNOSIDES A AND B
  2. HYDROCODONE W/ACETAMINOPHEN [Concomitant]
     Active Substance: ACETAMINOPHEN\HYDROCODONE BITARTRATE
  3. XARELTO [Concomitant]
     Active Substance: RIVAROXABAN
  4. LYRICA [Concomitant]
     Active Substance: PREGABALIN
  5. SIMVASTATIN. [Concomitant]
     Active Substance: SIMVASTATIN
  6. LISINOPRIL. [Concomitant]
     Active Substance: LISINOPRIL
  7. FUROSEMIDE. [Concomitant]
     Active Substance: FUROSEMIDE
  8. VENLAFAXINE [Concomitant]
     Active Substance: VENLAFAXINE HYDROCHLORIDE
  9. ZOLPIDEM [Concomitant]
     Active Substance: ZOLPIDEM\ZOLPIDEM TARTRATE
  10. METFORMIN [Concomitant]
     Active Substance: METFORMIN HYDROCHLORIDE
  11. BACLOFEN. [Concomitant]
     Active Substance: BACLOFEN
  12. CLONAZEPAM. [Concomitant]
     Active Substance: CLONAZEPAM
  13. ADVAIR HFA [Concomitant]
     Active Substance: FLUTICASONE PROPIONATE\SALMETEROL XINAFOATE
  14. MORPHINE [Concomitant]
     Active Substance: MORPHINE
  15. METHYLPHENIDATE. [Concomitant]
     Active Substance: METHYLPHENIDATE
  16. COPAXONE [Suspect]
     Active Substance: GLATIRAMER ACETATE
     Indication: MULTIPLE SCLEROSIS
     Dates: start: 200903
  17. METOPROLOL. [Concomitant]
     Active Substance: METOPROLOL
  18. ATENOLOL. [Concomitant]
     Active Substance: ATENOLOL
  19. BUMETANIDE. [Concomitant]
     Active Substance: BUMETANIDE
  20. TRAZODONE [Concomitant]
     Active Substance: TRAZODONE HYDROCHLORIDE
  21. TRAMADOL. [Concomitant]
     Active Substance: TRAMADOL

REACTIONS (2)
  - Carpal tunnel decompression [Unknown]
  - Movement disorder [Not Recovered/Not Resolved]

NARRATIVE: CASE EVENT DATE: 2016
